FAERS Safety Report 21920279 (Version 1)
Quarter: 2023Q1

REPORT INFORMATION
  Report Type: Spontaneous
  Country: US (occurrence: None)
  Receive Date: 20230127
  Receipt Date: 20230127
  Transmission Date: 20230417
  Serious: Yes (unspecified)
  Sender: FDA-Public Use
  Company Number: None

PATIENT
  Age: 49 Year
  Sex: Male
  Weight: 119.25 kg

DRUGS (5)
  1. LEVOCARNITINE\SEMAGLUTIDE [Suspect]
     Active Substance: LEVOCARNITINE\SEMAGLUTIDE
     Indication: Weight decreased
     Dosage: OTHER FREQUENCY : WEEKLY SQ;?
     Route: 058
     Dates: start: 20220922
  2. METOPROLOL [Concomitant]
     Active Substance: METOPROLOL
  3. LISINOPRIL [Concomitant]
     Active Substance: LISINOPRIL
  4. SIMVASTATIN [Concomitant]
     Active Substance: SIMVASTATIN
  5. Daily MVI [Concomitant]

REACTIONS (1)
  - Impaired gastric emptying [None]

NARRATIVE: CASE EVENT DATE: 20230125
